FAERS Safety Report 20681440 (Version 6)
Quarter: 2023Q2

REPORT INFORMATION
  Report Type: Other
  Country: IN (occurrence: None)
  Receive Date: 20220406
  Receipt Date: 20230628
  Transmission Date: 20230722
  Serious: Yes (Hospitalization, Other)
  Sender: FDA-Public Use
  Company Number: IN-ROCHE-3062898

PATIENT
  Age: 26 Year
  Sex: Female

DRUGS (2)
  1. PERJETA [Suspect]
     Active Substance: PERTUZUMAB
     Indication: Breast cancer
     Route: 042
  2. KADCYLA [Suspect]
     Active Substance: ADO-TRASTUZUMAB EMTANSINE
     Indication: Breast cancer metastatic
     Dosage: FORMULATION: INJECTION
     Route: 042
     Dates: start: 20220713

REACTIONS (23)
  - Dermatitis [Unknown]
  - Bacterial infection [Unknown]
  - Pneumonia [Unknown]
  - Viral infection [Unknown]
  - Portal hypertension [Unknown]
  - Coma scale abnormal [Unknown]
  - Pathogen resistance [Unknown]
  - Hypokalaemia [Unknown]
  - Metabolic acidosis [Unknown]
  - Staphylococcal infection [Unknown]
  - Oxygen saturation decreased [Unknown]
  - Anorectal varices [Unknown]
  - Lung consolidation [Unknown]
  - Anorectal disorder [Unknown]
  - Asthenia [Unknown]
  - Somnolence [Unknown]
  - Confusional state [Unknown]
  - Abdominal pain [Unknown]
  - Gastrointestinal wall thickening [Unknown]
  - Seizure [Unknown]
  - Eye discharge [Unknown]
  - Hyponatraemia [Unknown]
  - Fat tissue increased [Unknown]
